FAERS Safety Report 18860313 (Version 1)
Quarter: 2021Q1

REPORT INFORMATION
  Report Type: Spontaneous
  Country: DE (occurrence: DE)
  Receive Date: 20210208
  Receipt Date: 20210208
  Transmission Date: 20210420
  Serious: Yes (Death, Hospitalization)
  Sender: FDA-Public Use
  Company Number: DE-TEVA-2021-DE-1875978

PATIENT
  Age: 62 Year
  Sex: Male

DRUGS (1)
  1. DEXAMETHASON [Suspect]
     Active Substance: DEXAMETHASONE
     Dosage: 6 MILLIGRAM DAILY;
     Route: 065

REACTIONS (3)
  - Pneumothorax [Fatal]
  - Emphysema [Fatal]
  - Pneumomediastinum [Fatal]

NARRATIVE: CASE EVENT DATE: 20201210
